FAERS Safety Report 7907810-4 (Version None)
Quarter: 2011Q4

REPORT INFORMATION
  Report Type: 
  Country: None (occurrence: None)
  Receive Date: 20111110
  Receipt Date: 20111108
  Transmission Date: 20120403
  Serious: Yes (Other)
  Sender: FDA-Public Use
  Company Number: SE-PFIZER INC-2011210326

PATIENT
  Sex: Female

DRUGS (2)
  1. ALPRAZOLAM [Suspect]
     Indication: ANXIETY
  2. ALPRAZOLAM [Suspect]
     Indication: FIBROMYALGIA
     Dosage: UNK

REACTIONS (1)
  - DELIRIUM [None]
